FAERS Safety Report 5640880-5 (Version None)
Quarter: 2008Q1

REPORT INFORMATION
  Report Type: 
  Country: None (occurrence: None)
  Receive Date: 20080227
  Receipt Date: 20080222
  Transmission Date: 20080703
  Serious: Yes (Other)
  Sender: FDA-Public Use
  Company Number: A0712259A

PATIENT
  Age: 49 Year
  Sex: Male
  Weight: 93 kg

DRUGS (2)
  1. PARNATE [Suspect]
     Indication: DEPRESSION
     Dosage: 10MG PER DAY
     Route: 048
     Dates: start: 20050101, end: 20071215
  2. ALPRAZOLAM [Concomitant]
     Dates: start: 20050101

REACTIONS (3)
  - AGGRESSION [None]
  - IMPATIENCE [None]
  - IRRITABILITY [None]
